FAERS Safety Report 15008320 (Version 1)
Quarter: 2018Q2

REPORT INFORMATION
  Report Type: Spontaneous
  Country: BR (occurrence: BR)
  Receive Date: 20180613
  Receipt Date: 20180613
  Transmission Date: 20180711
  Serious: Yes (Other)
  Sender: FDA-Public Use
  Company Number: PHHY2018BR018372

PATIENT
  Sex: Female

DRUGS (2)
  1. OLCADIL [Suspect]
     Active Substance: CLOXAZOLAM
     Indication: PRODUCT USED FOR UNKNOWN INDICATION
     Route: 065
  2. SIMBRINZA [Suspect]
     Active Substance: BRIMONIDINE TARTRATE\BRINZOLAMIDE
     Indication: ANGLE CLOSURE GLAUCOMA
     Route: 047

REACTIONS (6)
  - Retinal vascular thrombosis [Unknown]
  - Asthenopia [Unknown]
  - Eye pain [Unknown]
  - Eyelid oedema [Unknown]
  - Blindness unilateral [Unknown]
  - Intraocular pressure increased [Unknown]
